FAERS Safety Report 8825602 (Version 1)
Quarter: 2012Q4

REPORT INFORMATION
  Report Type: Report from Study
  Country: NL (occurrence: NL)
  Receive Date: 20121004
  Receipt Date: 20121004
  Transmission Date: 20130627
  Serious: Yes (Other)
  Sender: FDA-Public Use
  Company Number: NL-PFIZER INC-2012239983

PATIENT

DRUGS (1)
  1. TOBRAMYCIN SULFATE [Suspect]
     Dosage: UNK

REACTIONS (2)
  - Haemorrhage [Unknown]
  - Off label use [Unknown]
